FAERS Safety Report 9202370 (Version 1)
Quarter: 2013Q2

REPORT INFORMATION
  Report Type: Spontaneous
  Country: US (occurrence: US)
  Receive Date: 20130401
  Receipt Date: 20130401
  Transmission Date: 20140414
  Serious: Yes (Death)
  Sender: FDA-Public Use
  Company Number: US-TEVA-395274USA

PATIENT
  Age: 75 Year
  Sex: Female

DRUGS (1)
  1. PROAIR HFA [Suspect]
     Indication: BRONCHOSPASM
     Route: 055
     Dates: start: 20120328, end: 20130328

REACTIONS (1)
  - Death [Fatal]
